FAERS Safety Report 19179743 (Version 1)
Quarter: 2021Q2

REPORT INFORMATION
  Report Type: Spontaneous
  Country: US (occurrence: US)
  Receive Date: 20210423
  Receipt Date: 20210423
  Transmission Date: 20210717
  Serious: Yes (Other)
  Sender: FDA-Public Use
  Company Number: None

PATIENT
  Sex: Female

DRUGS (5)
  1. OMEGA 3 [Concomitant]
     Active Substance: OMEGA-3 FATTY ACIDS
  2. ENSPRYNG [Suspect]
     Active Substance: SATRALIZUMAB-MWGE
     Indication: NEUROMYELITIS OPTICA SPECTRUM DISORDER
     Dosage: ?          OTHER FREQUENCY:Q4WK;?
     Route: 058
     Dates: start: 20210226
  3. MAG OXIDE [Concomitant]
     Active Substance: MAGNESIUM OXIDE
  4. LORATADINE. [Concomitant]
     Active Substance: LORATADINE
  5. CALCIUM CARB [Concomitant]
     Active Substance: CALCIUM CARBONATE

REACTIONS (2)
  - Hypersensitivity [None]
  - Therapy cessation [None]
